FAERS Safety Report 21715729 (Version 2)
Quarter: 2023Q2

REPORT INFORMATION
  Report Type: Spontaneous
  Country: US (occurrence: US)
  Receive Date: 20221212
  Receipt Date: 20230616
  Transmission Date: 20230722
  Serious: No
  Sender: FDA-Public Use
  Company Number: US-ALXN-A202215445

PATIENT
  Age: 15 Year
  Sex: Male
  Weight: 63.3 kg

DRUGS (5)
  1. SOLIRIS [Suspect]
     Active Substance: ECULIZUMAB
     Indication: Paroxysmal nocturnal haemoglobinuria
     Dosage: 900 MG, Q2W
     Route: 042
     Dates: start: 202110
  2. SOLIRIS [Suspect]
     Active Substance: ECULIZUMAB
     Indication: Thrombocytopenia
  3. CLONIDINE [Concomitant]
     Active Substance: CLONIDINE
     Indication: Product used for unknown indication
     Dosage: 200 ?G, QD
     Route: 065
  4. PENICILLIN                         /00000901/ [Concomitant]
     Indication: Product used for unknown indication
     Dosage: 250 MG, BID
     Route: 048
  5. HUMAN IMMUNOGLOBULIN G [Concomitant]
     Active Substance: HUMAN IMMUNOGLOBULIN G
     Indication: Product used for unknown indication
     Dosage: UNK
     Route: 065

REACTIONS (2)
  - Device issue [Recovered/Resolved]
  - Off label use [Unknown]

NARRATIVE: CASE EVENT DATE: 20220612
